FAERS Safety Report 7536436-X (Version None)
Quarter: 2011Q2

REPORT INFORMATION
  Report Type: 
  Country: None (occurrence: None)
  Receive Date: 20110608
  Receipt Date: 20110608
  Transmission Date: 20111010
  Serious: Yes (Other)
  Sender: FDA-Public Use
  Company Number: None

PATIENT
  Sex: Female

DRUGS (1)
  1. ACTEMRA [Suspect]
     Indication: ARTHROPATHY
     Dosage: 800MG MONTHLY IV
     Route: 042
     Dates: start: 20110427, end: 20110607

REACTIONS (3)
  - RASH MACULAR [None]
  - RASH PRURITIC [None]
  - RASH ERYTHEMATOUS [None]
